FAERS Safety Report 17435283 (Version 2)
Quarter: 2021Q4

REPORT INFORMATION
  Report Type: Report from Study
  Country: GB (occurrence: GB)
  Receive Date: 20200219
  Receipt Date: 20211112
  Transmission Date: 20220303
  Serious: No
  Sender: FDA-Public Use
  Company Number: GB-NOVARTISPH-NVSC2020GB037344

PATIENT
  Age: 7 Year
  Sex: Female
  Weight: 25 kg

DRUGS (6)
  1. EVEROLIMUS [Suspect]
     Active Substance: EVEROLIMUS
     Indication: Tuberous sclerosis complex
     Dosage: 8 MG
     Route: 048
     Dates: start: 20150409, end: 20200206
  2. EVEROLIMUS [Suspect]
     Active Substance: EVEROLIMUS
     Indication: Seizure
  3. TOPIRAMATE [Concomitant]
     Active Substance: TOPIRAMATE
     Indication: Epilepsy
     Dosage: 60 MG, BID
     Route: 065
     Dates: start: 201408
  4. VALPROATE SODIUM [Concomitant]
     Active Substance: VALPROATE SODIUM
     Indication: Epilepsy
     Dosage: 280 MG, BID
     Route: 065
     Dates: start: 201708
  5. ACYCLOVIR [Concomitant]
     Active Substance: ACYCLOVIR
     Indication: Prophylaxis
     Dosage: 5 MTS, BID
     Route: 065
     Dates: start: 20181205
  6. COTRIMOXAZOLE [Concomitant]
     Active Substance: SULFAMETHOXAZOLE\TRIMETHOPRIM
     Indication: Prophylaxis
     Dosage: 10 MTS, BID
     Route: 065
     Dates: start: 20171113

REACTIONS (2)
  - Pyrexia [Not Recovered/Not Resolved]
  - Liver function test abnormal [Not Recovered/Not Resolved]

NARRATIVE: CASE EVENT DATE: 20200131
